FAERS Safety Report 11047765 (Version 1)
Quarter: 2015Q2

REPORT INFORMATION
  Report Type: Spontaneous
  Country: US (occurrence: US)
  Receive Date: 20150420
  Receipt Date: 20150420
  Transmission Date: 20150821
  Serious: No
  Sender: FDA-Public Use
  Company Number: US-009507513-1504USA014645

PATIENT
  Age: 66 Year
  Sex: Female
  Weight: 93 kg

DRUGS (2)
  1. PRINIVIL [Suspect]
     Active Substance: LISINOPRIL
     Dosage: 20 MG A DAY
     Dates: end: 201310
  2. PRINIVIL [Suspect]
     Active Substance: LISINOPRIL
     Dosage: 40 MG A DAY
     Route: 048
     Dates: start: 2010

REACTIONS (9)
  - Herpes zoster [Unknown]
  - Macular degeneration [Not Recovered/Not Resolved]
  - Dizziness [Unknown]
  - Lip swelling [Unknown]
  - Local swelling [Unknown]
  - Nerve injury [Not Recovered/Not Resolved]
  - Insomnia [Not Recovered/Not Resolved]
  - Panic attack [Not Recovered/Not Resolved]
  - Arthralgia [Unknown]

NARRATIVE: CASE EVENT DATE: 2012
